FAERS Safety Report 16129837 (Version 1)
Quarter: 2019Q1

REPORT INFORMATION
  Report Type: Spontaneous
  Country: DK (occurrence: DK)
  Receive Date: 20190328
  Receipt Date: 20190328
  Transmission Date: 20190418
  Serious: Yes (Hospitalization)
  Sender: FDA-Public Use
  Company Number: DK-B.I. PHARMACEUTICALS,INC./RIDGEFIELD-2019-12-001015

PATIENT
  Age: 60 Year
  Sex: Male

DRUGS (8)
  1. JARDIANCE [Suspect]
     Active Substance: EMPAGLIFLOZIN
     Indication: TYPE 2 DIABETES MELLITUS
     Dosage: DOSIS: 1/2 TBL DGL I 14 DAGE. DEREFTER 1 TBL DGL. STYRKE: 25 MG.
     Route: 048
     Dates: start: 20181129
  2. JARDIANCE [Suspect]
     Active Substance: EMPAGLIFLOZIN
     Route: 048
  3. METFORMIN ACTAVIS [Concomitant]
     Active Substance: METFORMIN HYDROCHLORIDE
     Indication: TYPE 2 DIABETES MELLITUS
     Dosage: STYRKE: 500 MG.
     Route: 048
     Dates: start: 20160517
  4. SELEXID [Concomitant]
     Indication: CYSTITIS
     Dosage: STYRKE: 400 MG.
     Route: 048
     Dates: start: 20181225, end: 20181231
  5. ATORVASTATIN TEVA [Concomitant]
     Active Substance: ATORVASTATIN
     Indication: HYPERCHOLESTEROLAEMIA
     Dosage: STYRKE: 10 MG.
     Route: 048
     Dates: start: 20160616
  6. AMLODIPINE [Concomitant]
     Active Substance: AMLODIPINE BESYLATE
     Indication: HYPERTENSION
     Dosage: STYRKE: 5 MG.
     Route: 048
     Dates: start: 20161017
  7. SILDENAFIL ACCORD [Concomitant]
     Indication: ERECTILE DYSFUNCTION
     Dosage: DOSIS: 1 TABLET 1 TIME F?R VIRKNING ?NSKES. STYRKE: 100 MG.; AS REQUIRED
     Route: 048
     Dates: start: 20180913
  8. ANCOZAN COMP [Concomitant]
     Active Substance: HYDROCHLOROTHIAZIDE\LOSARTAN POTASSIUM
     Indication: HYPERTENSION
     Dosage: STYRKE: 50 + 12.5 MG.
     Route: 048
     Dates: start: 20140904

REACTIONS (1)
  - Urinary retention [Recovered/Resolved]

NARRATIVE: CASE EVENT DATE: 20181225
